FAERS Safety Report 4809460-5 (Version None)
Quarter: 2005Q4

REPORT INFORMATION
  Report Type: 
  Country: None (occurrence: None)
  Receive Date: 20051021
  Receipt Date: 20051017
  Transmission Date: 20060501
  Serious: Yes (Death)
  Sender: FDA-Public Use
  Company Number: NALB20050001

PATIENT
  Age: 42 Year
  Sex: Male

DRUGS (3)
  1. NALBUPHINE [Suspect]
     Indication: THERAPEUTIC PROCEDURE
     Dates: start: 20040101, end: 20040101
  2. ALPRAZOLAM [Suspect]
     Dates: end: 20040101
  3. PROPOFOL [Suspect]
     Indication: THERAPEUTIC PROCEDURE
     Dates: start: 20040101, end: 20040101

REACTIONS (3)
  - PULMONARY HAEMORRHAGE [None]
  - PULMONARY OEDEMA [None]
  - RESPIRATORY FAILURE [None]
